FAERS Safety Report 23816538 (Version 2)
Quarter: 2024Q2

REPORT INFORMATION
  Report Type: Report from Study
  Country: US (occurrence: US)
  Receive Date: 20240503
  Receipt Date: 20240528
  Transmission Date: 20240715
  Serious: No
  Sender: FDA-Public Use
  Company Number: US-AstraZeneca-CH-00615744A

PATIENT
  Sex: Female
  Weight: 63.492 kg

DRUGS (1)
  1. STRENSIQ [Suspect]
     Active Substance: ASFOTASE ALFA
     Indication: Product used for unknown indication
     Dosage: 80 UNK, QD
     Route: 065

REACTIONS (6)
  - Lacrimation increased [Recovered/Resolved]
  - Injection site bruising [Recovered/Resolved]
  - Sinusitis [Recovered/Resolved]
  - Nasopharyngitis [Recovered/Resolved]
  - Rhinorrhoea [Recovered/Resolved]
  - Fatigue [Recovered/Resolved]
